FAERS Safety Report 8498903-4 (Version None)
Quarter: 2012Q3

REPORT INFORMATION
  Report Type: 
  Country: None (occurrence: None)
  Receive Date: 20120710
  Receipt Date: 20120628
  Transmission Date: 20120928
  Serious: No
  Sender: FDA-Public Use
  Company Number: US-BIOGENIDEC-2012BI023145

PATIENT
  Sex: Male

DRUGS (2)
  1. TYSABRI [Suspect]
     Indication: MULTIPLE SCLEROSIS
     Route: 042
     Dates: start: 20070717, end: 20090429
  2. TYSABRI [Suspect]
     Route: 042

REACTIONS (3)
  - COORDINATION ABNORMAL [None]
  - ASTHENIA [None]
  - MOTOR DYSFUNCTION [None]
